FAERS Safety Report 12234722 (Version 3)
Quarter: 2016Q2

REPORT INFORMATION
  Report Type: Spontaneous
  Country: CZ (occurrence: CZ)
  Receive Date: 20160404
  Receipt Date: 20160429
  Transmission Date: 20160815
  Serious: Yes (Other)
  Sender: FDA-Public Use
  Company Number: CZ-ACTAVIS-2016-07183

PATIENT
  Age: 53 Month
  Sex: Female
  Weight: 2.35 kg

DRUGS (6)
  1. IRINOTECAN (UNKNOWN) [Suspect]
     Active Substance: IRINOTECAN
     Indication: MEDULLOBLASTOMA
     Dosage: 125 MG/M2, 1/TWO WEEKS
     Route: 065
  2. DOXORUBICIN (UNKNOWN) [Suspect]
     Active Substance: DOXORUBICIN
     Indication: MEDULLOBLASTOMA
     Dosage: 70 MG/M2, CYCLICAL
     Route: 042
  3. METHOTREXATE (METHOTREXATE SODIUM) [Suspect]
     Active Substance: METHOTREXATE SODIUM
     Indication: MEDULLOBLASTOMA
     Dosage: 2 MG, TID
     Route: 050
  4. BEVACIZUMAB [Suspect]
     Active Substance: BEVACIZUMAB
     Indication: MEDULLOBLASTOMA
     Dosage: 10 MG/KG, 1/TWO WEEKS
     Route: 065
  5. VINCRISTINE (UNKNOWN) [Suspect]
     Active Substance: VINCRISTINE
     Indication: MEDULLOBLASTOMA
     Dosage: 1.5 MG/M2, CYCLICAL
     Route: 065
  6. CYTARABINE (UNKNOWN) [Suspect]
     Active Substance: CYTARABINE
     Indication: MEDULLOBLASTOMA
     Dosage: 2 MG/KG, ONCE A MONTH
     Route: 065

REACTIONS (10)
  - Sepsis [Recovered/Resolved]
  - Toxicity to various agents [Recovered/Resolved]
  - Haemodynamic instability [Recovered/Resolved]
  - Skin toxicity [Recovered/Resolved]
  - Psychomotor hyperactivity [Recovered/Resolved]
  - Infection [Unknown]
  - Febrile neutropenia [Unknown]
  - Headache [Recovered/Resolved]
  - Pancytopenia [Recovered/Resolved]
  - Mucosal toxicity [Recovered/Resolved]
